FAERS Safety Report 24765843 (Version 1)
Quarter: 2024Q4

REPORT INFORMATION
  Report Type: Spontaneous
  Country: US (occurrence: US)
  Receive Date: 20241223
  Receipt Date: 20241223
  Transmission Date: 20250115
  Serious: Yes (Other)
  Sender: AMGEN
  Company Number: US-AMGEN-USASP2024250045

PATIENT

DRUGS (8)
  1. PREDNISONE [Suspect]
     Active Substance: PREDNISONE
     Indication: Diffuse large B-cell lymphoma
     Dosage: UNK (CONTINUED IN 21-DAY CYCLES FOR UP TO 6 CYCLES)
     Route: 065
  2. CYCLOPHOSPHAMIDE [Concomitant]
     Active Substance: CYCLOPHOSPHAMIDE
     Indication: Diffuse large B-cell lymphoma
     Dosage: UNK (CONTINUED IN 21-DAY CYCLES FOR UP TO 6 CYCLES)
  3. DOXORUBICIN [Concomitant]
     Active Substance: DOXORUBICIN
     Indication: Diffuse large B-cell lymphoma
     Dosage: UNK (CONTINUED IN 21-DAY CYCLES FOR UP TO 6 CYCLES)
  4. ETOPOSIDE [Concomitant]
     Active Substance: ETOPOSIDE
     Indication: Diffuse large B-cell lymphoma
     Dosage: UNK (CONTINUED IN 21-DAY CYCLES FOR UP TO 6 CYCLES)
  5. VINCRISTINE [Concomitant]
     Active Substance: VINCRISTINE
     Indication: Diffuse large B-cell lymphoma
     Dosage: UNK (CONTINUED IN 21-DAY CYCLES FOR UP TO 6 CYCLES)
  6. RITUXIMAB [Concomitant]
     Active Substance: RITUXIMAB
     Indication: Diffuse large B-cell lymphoma
     Dosage: UNK (CONTINUED IN 21-DAY CYCLES FOR UP TO 6 CYCLES)
  7. IBRUTINIB [Concomitant]
     Active Substance: IBRUTINIB
     Indication: Diffuse large B-cell lymphoma
     Dosage: 560 MILLIGRAM (DAYS 1-7) (CONTINUED IN 21-DAY CYCLES FOR UP TO 6 CYCLES)
     Route: 065
  8. LENALIDOMIDE [Concomitant]
     Active Substance: LENALIDOMIDE
     Indication: Diffuse large B-cell lymphoma
     Dosage: DOSE-ESCALATED AT DOSES OF 0, 15, 20 AND 25 MG (CONTINUED IN 21-DAY CYCLES FOR UP TO 6 CYCLES)
     Route: 065

REACTIONS (1)
  - Diffuse large B-cell lymphoma [Unknown]
